FAERS Safety Report 5776656-8 (Version None)
Quarter: 2008Q2

REPORT INFORMATION
  Report Type: 
  Country: None (occurrence: None)
  Receive Date: 20080618
  Receipt Date: 20080318
  Transmission Date: 20081010
  Serious: No
  Sender: FDA-Public Use
  Company Number: US-ASTRAZENECA-2008UW02889

PATIENT
  Age: 361 Month
  Sex: Female
  Weight: 60 kg

DRUGS (2)
  1. SYMBICORT [Suspect]
     Indication: ASTHMA
     Dosage: 160/4.5
     Route: 055
     Dates: start: 20071101, end: 20071201
  2. SYMBICORT [Suspect]
     Dosage: 160/4.5
     Route: 055
     Dates: start: 20080128, end: 20080203

REACTIONS (11)
  - ANXIETY [None]
  - ASTHENIA [None]
  - BLOOD PRESSURE INCREASED [None]
  - CHEST DISCOMFORT [None]
  - COLD SWEAT [None]
  - DYSPNOEA [None]
  - FEELING JITTERY [None]
  - HEADACHE [None]
  - NERVOUSNESS [None]
  - PALPITATIONS [None]
  - PHARYNGITIS STREPTOCOCCAL [None]
